FAERS Safety Report 7605876-2 (Version None)
Quarter: 2011Q3

REPORT INFORMATION
  Report Type: 
  Country: None (occurrence: None)
  Receive Date: 20110712
  Receipt Date: 20110712
  Transmission Date: 20111222
  Serious: Yes (Other)
  Sender: FDA-Public Use
  Company Number: None

PATIENT
  Sex: Male
  Weight: 80.6 kg

DRUGS (2)
  1. LAMICTAL [Suspect]
     Indication: EPILEPSY
     Dosage: 200 QAM 300 QPM  ONE 6AM  1 1/2 QPM PO
     Route: 048
  2. RISPERDAL [Suspect]
     Indication: AUTISM
     Dosage: 1.5 QAM  QPM  1.5 QAM  3 QPM  PO
     Route: 048

REACTIONS (2)
  - PRODUCT SUBSTITUTION ISSUE [None]
  - AGGRESSION [None]
